FAERS Safety Report 6804856-4 (Version None)
Quarter: 2010Q2

REPORT INFORMATION
  Report Type: 
  Country: None (occurrence: None)
  Receive Date: 20100628
  Receipt Date: 20070614
  Transmission Date: 20101027
  Serious: No
  Sender: FDA-Public Use
  Company Number: US-PFIZER INC-2007050002

PATIENT
  Sex: Female
  Weight: 68.04 kg

DRUGS (3)
  1. GEODON [Suspect]
     Indication: BIPOLAR DISORDER
     Dates: start: 20070523
  2. LUNESTA [Concomitant]
  3. BENICAL [Concomitant]
     Indication: HYPERTENSION

REACTIONS (2)
  - MEMORY IMPAIRMENT [None]
  - PALPITATIONS [None]
